FAERS Safety Report 6211949-1 (Version None)
Quarter: 2009Q2

REPORT INFORMATION
  Report Type: 
  Country: None (occurrence: None)
  Receive Date: 20090602
  Receipt Date: 20090527
  Transmission Date: 20091009
  Serious: Yes (Other)
  Sender: FDA-Public Use
  Company Number: US-AVENTIS-200913437US

PATIENT
  Sex: Female
  Weight: 91 kg

DRUGS (4)
  1. LANTUS [Suspect]
     Dosage: DOSE: 20-30 UNITS , 70 AT TIMES
     Route: 058
  2. LANTUS [Suspect]
     Route: 058
  3. STARLIX [Suspect]
     Dosage: DOSE: 1 DOSE WITH EACH MEAL
     Dates: start: 20060101
  4. CYMBALTA [Concomitant]
     Dosage: DOSE: 1 AT NIGHT

REACTIONS (2)
  - DIABETES MELLITUS INADEQUATE CONTROL [None]
  - WEIGHT INCREASED [None]
